FAERS Safety Report 9227835 (Version 1)
Quarter: 2013Q2

REPORT INFORMATION
  Report Type: Spontaneous
  Country: US (occurrence: US)
  Receive Date: 20130412
  Receipt Date: 20130412
  Transmission Date: 20140414
  Serious: Yes (Other)
  Sender: FDA-Public Use
  Company Number: US-PFIZER INC-2013115350

PATIENT
  Age: 49 Year
  Sex: Female
  Weight: 136.5 kg

DRUGS (4)
  1. GABAPENTIN [Suspect]
     Dosage: 400 MG, 2X/DAY
  2. GABAPENTIN [Suspect]
     Dosage: 400 MG, 1X/DAY
  3. METOPROLOL [Concomitant]
     Indication: HYPERTENSION
  4. LIPITOR [Concomitant]

REACTIONS (6)
  - Autoimmune thyroiditis [Unknown]
  - Impaired driving ability [Unknown]
  - Drug ineffective [Unknown]
  - Memory impairment [Unknown]
  - Euphoric mood [Unknown]
  - Sedation [Unknown]
